FAERS Safety Report 4536390-9 (Version None)
Quarter: 2004Q4

REPORT INFORMATION
  Report Type: 
  Country: None (occurrence: None)
  Receive Date: 20041223
  Receipt Date: 20040916
  Transmission Date: 20050328
  Serious: No
  Sender: FDA-Public Use
  Company Number: US-GLAXOSMITHKLINE-A0526018A

PATIENT
  Age: 57 Year
  Sex: Female

DRUGS (7)
  1. FLONASE [Suspect]
     Dosage: 2SPR TWICE PER DAY
     Route: 045
  2. PROCARDIA [Concomitant]
  3. NITROGLYCERIN [Concomitant]
  4. SYNTHROID [Concomitant]
  5. PROZAC [Concomitant]
  6. ACTONEL [Concomitant]
  7. LIBRIUM [Concomitant]

REACTIONS (1)
  - EYE SWELLING [None]
